FAERS Safety Report 4529599-1 (Version None)
Quarter: 2004Q4

REPORT INFORMATION
  Report Type: 
  Country: None (occurrence: None)
  Receive Date: 20041215
  Receipt Date: 20041215
  Transmission Date: 20050328
  Serious: Yes (Other)
  Sender: FDA-Public Use
  Company Number: None

PATIENT
  Age: 85 Year
  Sex: Female

DRUGS (7)
  1. VALPROIC ACID [Suspect]
     Indication: ABNORMAL BEHAVIOUR
     Dosage: 125, 250, 375, 500, 750 MG PO HS
     Route: 048
     Dates: start: 20041020, end: 20041027
  2. VALPROIC ACID [Suspect]
     Indication: MOOD SWINGS
     Dosage: 125, 250, 375, 500, 750 MG PO HS
     Route: 048
     Dates: start: 20041020, end: 20041027
  3. LISINOPRIL [Concomitant]
  4. SYNTHROID [Concomitant]
  5. DYAZIDE [Concomitant]
  6. CLARINEX [Concomitant]
  7. LORAZEPAM [Concomitant]

REACTIONS (1)
  - HYPONATRAEMIA [None]
